FAERS Safety Report 10693148 (Version 2)
Quarter: 2015Q1

REPORT INFORMATION
  Report Type: Spontaneous
  Country: CA (occurrence: CA)
  Receive Date: 20150106
  Receipt Date: 20150112
  Transmission Date: 20150720
  Serious: Yes (Hospitalization)
  Sender: FDA-Public Use
  Company Number: CA-SYMPLMED PHARMACEUTICALS-2014SYM00214

PATIENT
  Sex: Male

DRUGS (3)
  1. ACEON [Suspect]
     Active Substance: PERINDOPRIL ERBUMINE
     Dosage: 1 DF, QD
  2. ACEON [Suspect]
     Active Substance: PERINDOPRIL ERBUMINE
     Indication: PRODUCT USED FOR UNKNOWN INDICATION
     Dosage: 1 DF, QD
  3. ACEON [Suspect]
     Active Substance: PERINDOPRIL ERBUMINE
     Indication: PRODUCT USED FOR UNKNOWN INDICATION
     Dosage: 1 DF, QD

REACTIONS (1)
  - Lumbar hernia [Unknown]

NARRATIVE: CASE EVENT DATE: 20141120
